FAERS Safety Report 12728563 (Version 1)
Quarter: 2016Q3

REPORT INFORMATION
  Report Type: Spontaneous
  Country: US (occurrence: US)
  Receive Date: 20160906
  Receipt Date: 20160906
  Transmission Date: 20161109
  Serious: Yes (Hospitalization)
  Sender: FDA-Public Use
  Company Number: None

PATIENT

DRUGS (3)
  1. SIMVASTATIN 20 MG TABLET [Suspect]
     Active Substance: SIMVASTATIN
  2. POLYETHYLENE GLYCOL 3350 17 GRAM/DOSE ORAL POWDER [Suspect]
     Active Substance: POLYETHYLENE GLYCOL 3350
  3. Q-DRYL [Suspect]
     Active Substance: DIPHENHYDRAMINE HYDROCHLORIDE

REACTIONS (3)
  - Arthralgia [None]
  - Myalgia [None]
  - Back pain [None]
